FAERS Safety Report 17466988 (Version 1)
Quarter: 2020Q1

REPORT INFORMATION
  Report Type: Report from Study
  Country: US (occurrence: US)
  Receive Date: 20200227
  Receipt Date: 20200227
  Transmission Date: 20200409
  Serious: Yes (Other)
  Sender: FDA-Public Use
  Company Number: US-JNJFOC-20200226145

PATIENT
  Sex: Male

DRUGS (1)
  1. STELARA [Suspect]
     Active Substance: USTEKINUMAB
     Indication: PSORIASIS
     Dosage: 90MG/1ML
     Route: 058
     Dates: start: 20200207

REACTIONS (3)
  - Basal cell carcinoma [Unknown]
  - Skin plaque [Unknown]
  - Product dose omission [Unknown]
